FAERS Safety Report 5596967-9 (Version None)
Quarter: 2007Q4

REPORT INFORMATION
  Report Type: 
  Country: None (occurrence: None)
  Receive Date: 20071221
  Receipt Date: 20071015
  Transmission Date: 20080405
  Serious: No
  Sender: FDA-Public Use
  Company Number: SPV1-2007-04549

PATIENT
  Age: 15 Year
  Sex: Male
  Weight: 45.4 kg

DRUGS (4)
  1. VYVANSE [Suspect]
     Indication: ATTENTION DEFICIT/HYPERACTIVITY DISORDER
     Dosage: 50 MG PO AM AND 200 MG HS, ORAL
     Route: 048
     Dates: start: 20070901, end: 20071001
  2. VYVANSE [Suspect]
     Indication: OPPOSITIONAL DEFIANT DISORDER
     Dosage: 50 MG PO AM AND 200 MG HS, ORAL
     Route: 048
     Dates: start: 20070901, end: 20071001
  3. VYVANSE [Suspect]
     Indication: ATTENTION DEFICIT/HYPERACTIVITY DISORDER
     Dosage: 50 MG PO AM AND 200 MG HS, ORAL
     Route: 048
     Dates: start: 20071001
  4. VYVANSE [Suspect]
     Indication: OPPOSITIONAL DEFIANT DISORDER
     Dosage: 50 MG PO AM AND 200 MG HS, ORAL
     Route: 048
     Dates: start: 20071001

REACTIONS (8)
  - ABNORMAL BEHAVIOUR [None]
  - AGGRESSION [None]
  - AGITATION [None]
  - FATIGUE [None]
  - IRRITABILITY [None]
  - OFF LABEL USE [None]
  - OVERDOSE [None]
  - SOMNOLENCE [None]
